FAERS Safety Report 5983234-4 (Version None)
Quarter: 2008Q4

REPORT INFORMATION
  Report Type: 
  Country: None (occurrence: None)
  Receive Date: 20081208
  Receipt Date: 20080415
  Transmission Date: 20090506
  Serious: No
  Sender: FDA-Public Use
  Company Number: US-BAYER-200811672BCC

PATIENT
  Age: 80 Year
  Sex: Female
  Weight: 77 kg

DRUGS (6)
  1. ALEVE [Suspect]
     Indication: ANALGESIA
     Dosage: TOTAL DAILY DOSE: 880 MG  UNIT DOSE: 220 MG
     Route: 048
     Dates: start: 20080415
  2. PLAVIX [Concomitant]
  3. DETROL [Concomitant]
  4. MICROBID [Concomitant]
  5. PRAVACHOL [Concomitant]
  6. ASPIRIN [Concomitant]

REACTIONS (2)
  - DIZZINESS [None]
  - HYPERHIDROSIS [None]
